FAERS Safety Report 16076013 (Version 1)
Quarter: 2019Q1

REPORT INFORMATION
  Report Type: Spontaneous
  Country: GB (occurrence: GB)
  Receive Date: 20190315
  Receipt Date: 20190315
  Transmission Date: 20190418
  Serious: Yes (Disabling, Other)
  Sender: FDA-Public Use
  Company Number: GB-CONCORDIA PHARMACEUTICALS INC.-E2B_00019034

PATIENT
  Age: 74 Year
  Sex: Female
  Weight: 95.25 kg

DRUGS (6)
  1. TIMODINE [Concomitant]
     Indication: FUNGAL INFECTION
     Route: 061
     Dates: start: 20190103
  2. BISOPROLOL FUMARATE. [Concomitant]
     Active Substance: BISOPROLOL FUMARATE
  3. PREDNISOLONE. [Suspect]
     Active Substance: PREDNISOLONE
  4. VITAMIN B12 [Concomitant]
     Active Substance: CYANOCOBALAMIN
  5. MAGNESIUM GLYCINATE [Concomitant]
     Active Substance: MAGNESIUM GLYCINATE
  6. NATURE-THROID [Concomitant]
     Active Substance: THYROID, PORCINE

REACTIONS (3)
  - Atrial fibrillation [Unknown]
  - Haematemesis [Unknown]
  - Blood pressure increased [Unknown]
